FAERS Safety Report 5279683-2 (Version None)
Quarter: 2007Q1

REPORT INFORMATION
  Report Type: 
  Country: None (occurrence: None)
  Receive Date: 20070323
  Receipt Date: 20070308
  Transmission Date: 20070707
  Serious: Yes (Hospitalization, Disabling)
  Sender: FDA-Public Use
  Company Number: 2007S1002202

PATIENT
  Age: 42 Year
  Sex: Female

DRUGS (1)
  1. PHENYTEK [Suspect]
     Dosage: ORAL
     Route: 048

REACTIONS (3)
  - BLINDNESS [None]
  - STEVENS-JOHNSON SYNDROME [None]
  - TOXIC EPIDERMAL NECROLYSIS [None]
